FAERS Safety Report 8353915-6 (Version None)
Quarter: 2012Q2

REPORT INFORMATION
  Report Type: 
  Country: None (occurrence: None)
  Receive Date: 20120511
  Receipt Date: 20120309
  Transmission Date: 20120825
  Serious: Yes (Other)
  Sender: FDA-Public Use
  Company Number: US-GLAXOSMITHKLINE-A0969238A

PATIENT
  Age: 63 Year
  Sex: Female
  Weight: 99.1 kg

DRUGS (5)
  1. CALCIUM + VITAMIN D [Concomitant]
  2. ATENOLOL [Concomitant]
     Dosage: 100MG PER DAY
  3. HYDROCHLOROTHIAZIDE [Concomitant]
     Dosage: 25MG PER DAY
  4. XELODA [Concomitant]
     Dosage: 2G TWICE PER DAY
  5. TYKERB [Suspect]
     Indication: BREAST CANCER
     Route: 048

REACTIONS (4)
  - BLOOD BILIRUBIN INCREASED [None]
  - ALANINE AMINOTRANSFERASE INCREASED [None]
  - HEPATIC ENZYME INCREASED [None]
  - ASPARTATE AMINOTRANSFERASE INCREASED [None]
